FAERS Safety Report 6920762-9 (Version None)
Quarter: 2010Q3

REPORT INFORMATION
  Report Type: 
  Country: None (occurrence: None)
  Receive Date: 20100812
  Receipt Date: 20100803
  Transmission Date: 20110219
  Serious: Yes (Hospitalization)
  Sender: FDA-Public Use
  Company Number: US-JNJFOC-20100701931

PATIENT
  Sex: Male
  Weight: 97.52 kg

DRUGS (8)
  1. LEVAQUIN [Suspect]
     Indication: ESCHERICHIA INFECTION
     Route: 048
  2. LEVAQUIN [Suspect]
     Route: 042
  3. INDERAL [Concomitant]
     Indication: VARICES OESOPHAGEAL
     Route: 048
  4. ALDACTONE [Concomitant]
     Indication: FLUID RETENTION
     Route: 048
  5. OMEPRAZOLE [Concomitant]
     Route: 048
  6. LANTUS [Concomitant]
     Indication: DIABETES MELLITUS
     Dosage: BEFORE BED
     Route: 058
  7. INSULIN [Concomitant]
     Indication: DIABETES MELLITUS
     Dosage: 3 IN A DAY
     Route: 058
  8. LASIX [Concomitant]
     Indication: FLUID RETENTION
     Route: 048

REACTIONS (5)
  - BLOOD BILIRUBIN INCREASED [None]
  - DECREASED APPETITE [None]
  - HEPATIC ENZYME INCREASED [None]
  - MOUTH ULCERATION [None]
  - WEIGHT DECREASED [None]
